FAERS Safety Report 8170632-6 (Version None)
Quarter: 2012Q1

REPORT INFORMATION
  Report Type: 
  Country: None (occurrence: None)
  Receive Date: 20120228
  Receipt Date: 20120217
  Transmission Date: 20120608
  Serious: Yes (Hospitalization, Other)
  Sender: FDA-Public Use
  Company Number: DE-ROCHE-1041551

PATIENT
  Sex: Female

DRUGS (6)
  1. SERTRALINE HYDROCHLORIDE [Concomitant]
  2. HYDROCHLOROTHIAZIDE [Concomitant]
  3. BISOPROLOL FUMARATE [Concomitant]
  4. HERCEPTIN [Suspect]
     Indication: BREAST CANCER
  5. RAMIPRIL [Concomitant]
  6. LEVOTHYROXINE SODIUM [Concomitant]

REACTIONS (4)
  - CEREBRAL ISCHAEMIA [None]
  - ATRIAL FIBRILLATION [None]
  - HEMIPARESIS [None]
  - LEFT VENTRICULAR DYSFUNCTION [None]
